FAERS Safety Report 7678948-4 (Version None)
Quarter: 2011Q3

REPORT INFORMATION
  Report Type: 
  Country: None (occurrence: None)
  Receive Date: 20110812
  Receipt Date: 20110804
  Transmission Date: 20111222
  Serious: No
  Sender: FDA-Public Use
  Company Number: US-BIOGENIDEC-2011BI029343

PATIENT
  Sex: Female

DRUGS (1)
  1. TYSABRI [Suspect]
     Indication: MULTIPLE SCLEROSIS
     Route: 042
     Dates: start: 20071228

REACTIONS (7)
  - CHOKING [None]
  - FATIGUE [None]
  - RESPIRATORY MUSCLE WEAKNESS [None]
  - SALIVA ALTERED [None]
  - MEMORY IMPAIRMENT [None]
  - GAIT DISTURBANCE [None]
  - ASTHENIA [None]
